FAERS Safety Report 18665746 (Version 1)
Quarter: 2020Q4

REPORT INFORMATION
  Report Type: Spontaneous
  Country: US (occurrence: US)
  Receive Date: 20201226
  Receipt Date: 20201226
  Transmission Date: 20210114
  Serious: Yes (Other)
  Sender: FDA-Public Use
  Company Number: US-ACCORD-211940

PATIENT
  Age: 9 Year
  Sex: Female

DRUGS (5)
  1. METHOTREXATE. [Concomitant]
     Active Substance: METHOTREXATE
     Indication: GANGLIONEUROBLASTOMA
     Dosage: ON DAY 4 ONLY, 12 G/M2
  2. ETOPOSIDE. [Concomitant]
     Active Substance: ETOPOSIDE
     Indication: GANGLIONEUROBLASTOMA
     Dosage: 120 MG/M2/DAY ON DAYS 2 AND 3
  3. CYCLOPHOSPHAMIDE/CYCLOPHOSPHAMIDE MONOHYDRATE [Concomitant]
     Active Substance: CYCLOPHOSPHAMIDE
     Indication: GANGLIONEUROBLASTOMA
     Dosage: 2000 MG/M2/DAY ON DAYS 2 AND 3
  4. VINCRISTINE [Concomitant]
     Active Substance: VINCRISTINE
     Indication: GANGLIONEUROBLASTOMA
     Dosage: DAYS 1, 8, AND 15
  5. CISPLATIN. [Suspect]
     Active Substance: CISPLATIN
     Indication: GANGLIONEUROBLASTOMA
     Dosage: DAY 1 ONLY

REACTIONS (4)
  - Clostridium difficile colitis [Unknown]
  - Off label use [Unknown]
  - Febrile neutropenia [Unknown]
  - Deafness [Unknown]
